FAERS Safety Report 4543329-9 (Version None)
Quarter: 2004Q4

REPORT INFORMATION
  Report Type: 
  Country: None (occurrence: None)
  Receive Date: 20041229
  Receipt Date: 20041222
  Transmission Date: 20050328
  Serious: Yes (Hospitalization)
  Sender: FDA-Public Use
  Company Number: 2004AP04579

PATIENT
  Age: 28 Year
  Sex: Male
  Weight: 64 kg

DRUGS (17)
  1. SEROQUEL [Suspect]
     Indication: SCHIZOPHRENIA
     Dosage: 400 MG DAILY; PO
     Route: 048
     Dates: start: 20040812, end: 20040813
  2. SEROQUEL [Suspect]
     Indication: SCHIZOPHRENIA
     Dosage: 300 MG DAILY; PO
     Route: 048
     Dates: start: 20040814, end: 20040816
  3. SEROQUEL [Suspect]
     Indication: SCHIZOPHRENIA
     Dosage: NI
  4. BARNETIL [Suspect]
     Indication: SCHIZOPHRENIA
     Dosage: NI
     Dates: start: 20040705, end: 20040722
  5. BARNETIL [Suspect]
     Indication: SCHIZOPHRENIA
     Dosage: 400 MG TID; PO
     Route: 048
     Dates: start: 20040805, end: 20040813
  6. BARNETIL [Suspect]
     Indication: SCHIZOPHRENIA
     Dosage: 200 MG TID; PO
     Route: 048
     Dates: start: 20040814, end: 20040816
  7. VALERIN [Suspect]
     Indication: SCHIZOPHRENIA
     Dosage: 400 MG TID; PO
     Route: 048
     Dates: end: 20040814
  8. LODOPIN [Suspect]
     Indication: SCHIZOPHRENIA
     Dosage: 100 MG TID; PO
     Route: 048
     Dates: start: 20040802, end: 20040816
  9. VITAMIN A [Suspect]
     Indication: SCHIZOPHRENIA
     Dates: start: 20040716, end: 20040816
  10. LEVOTOMIN [Suspect]
     Indication: PHYSICAL ABUSE
     Dates: start: 20040730, end: 20040804
  11. LEVOTOMIN [Suspect]
     Indication: SCHIZOPHRENIA
     Dates: start: 20040730, end: 20040804
  12. LEVOTOMIN [Suspect]
     Indication: VERBAL ABUSE
     Dates: start: 20040730, end: 20040804
  13. LEVOTOMIN [Suspect]
     Indication: PHYSICAL ABUSE
     Dosage: 67 MG TID; PO
     Route: 048
     Dates: start: 20040805, end: 20040812
  14. LEVOTOMIN [Suspect]
     Indication: SCHIZOPHRENIA
     Dosage: 67 MG TID; PO
     Route: 048
     Dates: start: 20040805, end: 20040812
  15. LEVOTOMIN [Suspect]
     Indication: VERBAL ABUSE
     Dosage: 67 MG TID; PO
     Route: 048
     Dates: start: 20040805, end: 20040812
  16. ISOMYTAL [Suspect]
     Indication: INSOMNIA
     Dosage: 0.2 G DAILY; PO
     Route: 048
     Dates: start: 20040807, end: 20040813
  17. RISPERDAL [Concomitant]

REACTIONS (14)
  - AGITATION [None]
  - ARTHRALGIA [None]
  - COMA [None]
  - COMMUNICATION DISORDER [None]
  - DELUSION [None]
  - DYSPHAGIA [None]
  - ERYTHEMA [None]
  - HIP SWELLING [None]
  - INDURATION [None]
  - INSOMNIA [None]
  - NEUROLEPTIC MALIGNANT SYNDROME [None]
  - SCREAMING [None]
  - SOMNOLENCE [None]
  - SPEECH DISORDER [None]
